FAERS Safety Report 8609754 (Version 3)
Quarter: 2012Q4

REPORT INFORMATION
  Report Type: Report from Study
  Country: JP (occurrence: JP)
  Receive Date: 20120612
  Receipt Date: 20121024
  Transmission Date: 20130627
  Serious: Yes (Hospitalization, Other)
  Sender: FDA-Public Use
  Company Number: JP-ASTELLAS-2012US005339

PATIENT
  Age: 49 Year
  Sex: Male
  Weight: 57 kg

DRUGS (22)
  1. ERLOTINIB TABLET [Suspect]
     Indication: ADENOCARCINOMA PANCREAS
     Dosage: 100 mg, UID/QD
     Route: 048
     Dates: start: 20120413, end: 20120426
  2. GEMCITABINE HYDROCHLORIDE [Suspect]
     Indication: ADENOCARCINOMA PANCREAS
     Dosage: 1000 mg/m2, UID/QD
     Route: 041
     Dates: start: 20120413, end: 20120413
  3. GEMCITABINE HYDROCHLORIDE [Suspect]
     Dosage: 1000 mg/m2, UID/QD
     Route: 041
     Dates: start: 20120420, end: 20120420
  4. PANCRELIPASE [Concomitant]
     Indication: PRODUCT USED FOR UNKNOWN INDICATION
     Dosage: 450 mg, UID/QD
     Route: 048
  5. OXYCONTIN [Concomitant]
     Indication: PRODUCT USED FOR UNKNOWN INDICATION
     Dosage: 40 mg, UID/QD
     Route: 048
     Dates: start: 20120414
  6. LOXOPROFEN SODIUM [Concomitant]
     Indication: PRODUCT USED FOR UNKNOWN INDICATION
     Dosage: 180 mg, UID/QD
     Route: 048
  7. PARIET [Concomitant]
     Indication: PRODUCT USED FOR UNKNOWN INDICATION
     Dosage: 10 mg, UID/QD
     Route: 048
     Dates: end: 20120417
  8. PARIET [Concomitant]
     Dosage: 10 mg, UID/QD
     Route: 048
     Dates: start: 20120422
  9. NOVAMIN                            /00391002/ [Concomitant]
     Indication: PRODUCT USED FOR UNKNOWN INDICATION
     Dosage: 15 mg, UID/QD
     Route: 048
     Dates: end: 20120416
  10. MAGMITT [Concomitant]
     Indication: PRODUCT USED FOR UNKNOWN INDICATION
     Dosage: 1500 mg, Unknown/D
     Route: 048
     Dates: end: 20120417
  11. LYRICA [Concomitant]
     Indication: PRODUCT USED FOR UNKNOWN INDICATION
     Dosage: 150 mg, UID/QD
     Route: 048
  12. SENNOSIDES [Concomitant]
     Indication: PRODUCT USED FOR UNKNOWN INDICATION
     Dosage: 24 mg, UID/QD
     Route: 048
     Dates: start: 20120413, end: 20120413
  13. MUCOSTA [Concomitant]
     Indication: PRODUCT USED FOR UNKNOWN INDICATION
     Dosage: 300 mg, UID/QD
     Route: 048
     Dates: end: 20120422
  14. FENTOS [Concomitant]
     Indication: PRODUCT USED FOR UNKNOWN INDICATION
     Dosage: 2 mg, UID/QD
     Route: 062
     Dates: start: 20120414, end: 20120415
  15. FENTOS [Concomitant]
     Dosage: 4 mg, UID/QD
     Route: 062
     Dates: start: 20120416
  16. OXINORM                            /00045603/ [Concomitant]
     Indication: PRODUCT USED FOR UNKNOWN INDICATION
     Dosage: 15 mg, UID/QD
     Route: 048
     Dates: start: 20120414
  17. SANDOSTATIN [Concomitant]
     Indication: PRODUCT USED FOR UNKNOWN INDICATION
     Dosage: 200 ug, UID/QD
     Route: 058
     Dates: start: 20120415, end: 20120421
  18. SANDOSTATIN [Concomitant]
     Dosage: 200 ug, UID/QD
     Route: 030
     Dates: start: 20120422
  19. GRANISETRON [Concomitant]
     Indication: PRODUCT USED FOR UNKNOWN INDICATION
     Dosage: 1 mg, UID/QD
     Route: 042
     Dates: start: 20120413, end: 20120413
  20. GRANISETRON [Concomitant]
     Dosage: 1 mg, UID/QD
     Route: 042
     Dates: start: 20120420, end: 20120420
  21. DEXAMETHASONE SODIUM PHOSPHATE [Concomitant]
     Indication: PRODUCT USED FOR UNKNOWN INDICATION
     Dosage: 6.6 mg, UID/QD
     Route: 042
     Dates: start: 20120413, end: 20120413
  22. DEXAMETHASONE SODIUM PHOSPHATE [Concomitant]
     Dosage: 6.6 mg, UID/QD
     Route: 042
     Dates: start: 20120420, end: 20120420

REACTIONS (10)
  - White blood cell count decreased [Recovered/Resolved]
  - Anaemia [Recovering/Resolving]
  - Hyperglycaemia [Not Recovered/Not Resolved]
  - Decreased appetite [Not Recovered/Not Resolved]
  - Vomiting [Recovering/Resolving]
  - Rash [Recovering/Resolving]
  - Insomnia [Not Recovered/Not Resolved]
  - Platelet count decreased [Not Recovered/Not Resolved]
  - Oesophageal varices haemorrhage [Recovering/Resolving]
  - Oesophageal varices haemorrhage [Recovering/Resolving]
